FAERS Safety Report 5451014-4 (Version None)
Quarter: 2007Q3

REPORT INFORMATION
  Report Type: 
  Country: None (occurrence: None)
  Receive Date: 20070911
  Receipt Date: 20070823
  Transmission Date: 20080115
  Serious: Yes (Hospitalization)
  Sender: FDA-Public Use
  Company Number: 6037254

PATIENT
  Age: 74 Year
  Sex: Female

DRUGS (4)
  1. BISOPROLOL FUMARATE [Suspect]
     Indication: CARDIAC FAILURE CONGESTIVE
     Dosage: ORAL
     Route: 048
     Dates: start: 20040115, end: 20040506
  2. VIOXX [Suspect]
     Indication: DRUG USE FOR UNKNOWN INDICATION
     Dosage: ORAL
     Route: 048
     Dates: start: 20040426, end: 20040506
  3. MODURETIC 5-50 [Suspect]
     Indication: ESSENTIAL HYPERTENSION
     Dosage: 0,5 DOSAGE FORMS (0.5 DOSAGE FORMS, 1 IN 1 D) ORAL
     Route: 048
     Dates: end: 20040513
  4. FLECAINIDE ACETATE [Suspect]
     Indication: EXTRASYSTOLES
     Dosage: ORAL
     Route: 048
     Dates: start: 19970215, end: 20040506

REACTIONS (4)
  - BLOOD CREATININE INCREASED [None]
  - DIZZINESS [None]
  - HYPERTENSION [None]
  - SINUS BRADYCARDIA [None]
